FAERS Safety Report 8233304-5 (Version None)
Quarter: 2012Q1

REPORT INFORMATION
  Report Type: 
  Country: None (occurrence: None)
  Receive Date: 20120326
  Receipt Date: 20120315
  Transmission Date: 20120608
  Serious: Yes (Hospitalization)
  Sender: FDA-Public Use
  Company Number: US-BAYER-2011-040636

PATIENT
  Age: 16 Year
  Sex: Female
  Weight: 103.86 kg

DRUGS (2)
  1. IBUPROFEN [Concomitant]
     Dosage: UNK
     Route: 048
     Dates: start: 20060724
  2. YAZ [Suspect]
     Indication: MENSTRUATION IRREGULAR
     Dosage: UNK
     Dates: start: 20060815, end: 20061024

REACTIONS (10)
  - EMOTIONAL DISTRESS [None]
  - PULMONARY EMBOLISM [None]
  - RIGHT VENTRICULAR DYSFUNCTION [None]
  - CHEST PAIN [None]
  - DILATATION VENTRICULAR [None]
  - DYSPNOEA [None]
  - PULMONARY INFARCTION [None]
  - PAIN [None]
  - PULMONARY ARTERY DILATATION [None]
  - ANXIETY [None]
